FAERS Safety Report 10418619 (Version 1)
Quarter: 2014Q3

REPORT INFORMATION
  Report Type: Spontaneous
  Country: JP (occurrence: JP)
  Receive Date: 20140829
  Receipt Date: 20140829
  Transmission Date: 20150326
  Serious: Yes (Hospitalization, Other)
  Sender: FDA-Public Use
  Company Number: PHHY2014JP106383

PATIENT
  Age: 72 Year
  Sex: Male

DRUGS (7)
  1. CEFAZOLIN [Suspect]
     Active Substance: CEFAZOLIN
     Indication: SPINAL CORD INFECTION
  2. VORICONAZOLE. [Suspect]
     Active Substance: VORICONAZOLE
     Indication: SPINAL CORD INFECTION
  3. TEICOPLANIN [Suspect]
     Active Substance: TEICOPLANIN
     Indication: SPINAL CORD INFECTION
  4. RIFAMPICIN [Suspect]
     Active Substance: RIFAMPIN
     Indication: SPINAL CORD INFECTION
  5. LINEZOLID. [Suspect]
     Active Substance: LINEZOLID
     Indication: SPINAL CORD INFECTION
  6. ANAESTHETICS [Concomitant]
     Active Substance: UNSPECIFIED INGREDIENT
     Route: 042
  7. ANAESTHETICS [Concomitant]
     Active Substance: UNSPECIFIED INGREDIENT
     Route: 061

REACTIONS (4)
  - Back pain [Recovered/Resolved]
  - Kyphosis postoperative [Unknown]
  - Candida infection [Recovered/Resolved]
  - Spinal cord infection [Recovered/Resolved]
